FAERS Safety Report 5958455-7 (Version None)
Quarter: 2008Q4

REPORT INFORMATION
  Report Type: 
  Country: None (occurrence: None)
  Receive Date: 20081119
  Receipt Date: 20081106
  Transmission Date: 20090506
  Serious: Yes (Other)
  Sender: FDA-Public Use
  Company Number: US-AVENTIS-200816820US

PATIENT
  Sex: Male

DRUGS (1)
  1. OPTICLIK (INSULIN INJECTION PEN) [Suspect]

REACTIONS (1)
  - DEVICE MALFUNCTION [None]
